FAERS Safety Report 21331644 (Version 1)
Quarter: 2022Q3

REPORT INFORMATION
  Report Type: Spontaneous
  Country: US (occurrence: US)
  Receive Date: 20220914
  Receipt Date: 20220914
  Transmission Date: 20221027
  Serious: No
  Sender: FDA-Public Use
  Company Number: US-ChurchDwight-2022-CDW-01380

PATIENT
  Sex: Female

DRUGS (1)
  1. ZICAM INTENSE SINUS RELIEF [Suspect]
     Active Substance: OXYMETAZOLINE HYDROCHLORIDE
     Indication: Sinusitis
     Route: 045
     Dates: start: 20220902, end: 20220902

REACTIONS (3)
  - Anosmia [Not Recovered/Not Resolved]
  - Ageusia [Not Recovered/Not Resolved]
  - Application site pain [Recovered/Resolved]

NARRATIVE: CASE EVENT DATE: 20220902
